FAERS Safety Report 9780163 (Version 3)
Quarter: 2014Q1

REPORT INFORMATION
  Report Type: Spontaneous
  Country: AR (occurrence: AR)
  Receive Date: 20131223
  Receipt Date: 20140123
  Transmission Date: 20141002
  Serious: No
  Sender: FDA-Public Use
  Company Number: PHHY2013AR132003

PATIENT
  Age: 26 Year
  Sex: Female

DRUGS (3)
  1. LAPENAX [Suspect]
     Indication: SCHIZOPHRENIA, PARANOID TYPE
     Dosage: 100 MG, DAILY
     Route: 048
     Dates: end: 20131115
  2. LEVOMEPROMAZINE [Concomitant]
     Dosage: 75 MG, DAILY
  3. VALCOTE [Concomitant]
     Dosage: 500 MG, TID

REACTIONS (4)
  - White blood cell count increased [Unknown]
  - Neutrophil count increased [Unknown]
  - Neutropenia [Not Recovered/Not Resolved]
  - White blood cell count decreased [Unknown]
